FAERS Safety Report 8261266-3 (Version None)
Quarter: 2012Q2

REPORT INFORMATION
  Report Type: 
  Country: None (occurrence: None)
  Receive Date: 20120405
  Receipt Date: 20120329
  Transmission Date: 20120825
  Serious: Yes (Other)
  Sender: FDA-Public Use
  Company Number: DE-JNJFOC-20120206847

PATIENT
  Sex: Male

DRUGS (3)
  1. STELARA [Suspect]
     Indication: PSORIASIS
     Route: 058
     Dates: start: 20110817, end: 20110817
  2. STELARA [Suspect]
     Route: 058
     Dates: start: 20110721, end: 20110721
  3. STELARA [Suspect]
     Route: 058
     Dates: start: 20111108, end: 20111108

REACTIONS (4)
  - DIZZINESS [None]
  - ASTHENIA [None]
  - CENTRAL NERVOUS SYSTEM LESION [None]
  - VISUAL IMPAIRMENT [None]
